FAERS Safety Report 4352321-9 (Version None)
Quarter: 2004Q2

REPORT INFORMATION
  Report Type: 
  Country: None (occurrence: None)
  Receive Date: 20040415
  Receipt Date: 20030317
  Transmission Date: 20050107
  Serious: Yes (Hospitalization)
  Sender: FDA-Public Use
  Company Number: 2003UW03536

PATIENT
  Sex: Female

DRUGS (1)
  1. TENORMIN [Suspect]
     Dates: start: 20020101

REACTIONS (1)
  - DYSPNOEA [None]
